FAERS Safety Report 6565444-0 (Version None)
Quarter: 2010Q1

REPORT INFORMATION
  Report Type: 
  Country: None (occurrence: None)
  Receive Date: 20100201
  Receipt Date: 20100127
  Transmission Date: 20100710
  Serious: Yes (Death)
  Sender: FDA-Public Use
  Company Number: PHHY2010TH02855

PATIENT
  Sex: Male
  Weight: 57 kg

DRUGS (3)
  1. GLEEVEC [Suspect]
     Indication: ACUTE LYMPHOCYTIC LEUKAEMIA
     Dosage: 600 MG DAILY
     Dates: start: 20091102
  2. GLEEVEC [Suspect]
     Dosage: 800 MG DAILY
     Route: 048
     Dates: start: 20091105, end: 20100115
  3. HYPER-CVAD [Concomitant]

REACTIONS (1)
  - DEATH [None]
